FAERS Safety Report 15203313 (Version 1)
Quarter: 2018Q3

REPORT INFORMATION
  Report Type: Spontaneous
  Country: GB (occurrence: GB)
  Receive Date: 20180726
  Receipt Date: 20180726
  Transmission Date: 20181010
  Serious: Yes (Other)
  Sender: FDA-Public Use
  Company Number: GB-PFIZER INC-2018295029

PATIENT
  Age: 55 Year
  Sex: Female
  Weight: 95.4 kg

DRUGS (5)
  1. GLUCOSE, MONOHYDRATE [Suspect]
     Active Substance: DEXTROSE
     Dosage: OXALIPLATIN AND GLUCOSE 5% BP (100 ML ODD DOSE)
     Route: 042
     Dates: start: 20180618, end: 20180618
  2. OXALIPLATIN. [Suspect]
     Active Substance: OXALIPLATIN
     Dosage: OXALIPLATIN AND GLUCOSE 5% BP (100 ML ODD DOSE)
     Route: 042
     Dates: start: 20180618, end: 20180618
  3. GLUCOSE, MONOHYDRATE [Suspect]
     Active Substance: DEXTROSE
     Indication: MEDICATION DILUTION
     Dosage: 1000 ML, WEEKLY
     Route: 042
  4. OXALIPLATIN. [Suspect]
     Active Substance: OXALIPLATIN
     Indication: RECTAL CANCER
     Dosage: 340 MG, WEEKLY
     Route: 042
  5. CALCIUM FOLINATE [Suspect]
     Active Substance: LEUCOVORIN CALCIUM
     Dosage: 350 MG, UNK
     Route: 042
     Dates: start: 20180618

REACTIONS (6)
  - Blood pressure increased [Recovered/Resolved]
  - Erythema [Recovered/Resolved]
  - Tachycardia [Recovered/Resolved]
  - Urticaria [Recovered/Resolved]
  - Dyspnoea [Recovered/Resolved]
  - Chest discomfort [Recovered/Resolved]

NARRATIVE: CASE EVENT DATE: 20180618
